FAERS Safety Report 4832337-6 (Version None)
Quarter: 2005Q4

REPORT INFORMATION
  Report Type: 
  Country: None (occurrence: None)
  Receive Date: 20051114
  Receipt Date: 20050930
  Transmission Date: 20060501
  Serious: Yes (Death)
  Sender: FDA-Public Use
  Company Number: 2005AL004154

PATIENT
  Age: 27 Year

DRUGS (3)
  1. DIAZEPAM [Suspect]
     Dosage: PO
     Route: 048
  2. METHAMPHETAMINE HCL [Suspect]
     Dosage: PO
     Route: 048
  3. ETHANOL [Suspect]
     Dosage: PO
     Route: 048

REACTIONS (4)
  - ALCOHOL USE [None]
  - INTENTIONAL DRUG MISUSE [None]
  - MULTIPLE DRUG OVERDOSE [None]
  - UNEVALUABLE EVENT [None]
